FAERS Safety Report 15353163 (Version 1)
Quarter: 2018Q3

REPORT INFORMATION
  Report Type: Spontaneous
  Country: FI (occurrence: FI)
  Receive Date: 20180905
  Receipt Date: 20180905
  Transmission Date: 20181010
  Serious: Yes (Life-Threatening, Other)
  Sender: FDA-Public Use
  Company Number: FI-TAKEDA-2018TUS026426

PATIENT
  Age: 17 Year
  Sex: Female

DRUGS (4)
  1. BRINTELLIX [Suspect]
     Active Substance: VORTIOXETINE HYDROBROMIDE
     Indication: DEPRESSION
     Dosage: 5 MG, QD
     Route: 048
     Dates: start: 20180702, end: 20180807
  2. TENOBLOCK [Concomitant]
     Indication: LONG QT SYNDROME
     Dosage: 75 MG, QD
     Route: 048
     Dates: start: 201702
  3. MELATONIN [Concomitant]
     Active Substance: MELATONIN
     Indication: INSOMNIA
     Dosage: UNK
     Route: 048
     Dates: start: 201706
  4. AVAMYS [Concomitant]
     Active Substance: FLUTICASONE FUROATE
     Indication: SINUSITIS
     Dosage: UNK, QD
     Route: 045
     Dates: start: 201806

REACTIONS (5)
  - Electrocardiogram QT prolonged [Recovered/Resolved]
  - Drug administered to patient of inappropriate age [Unknown]
  - Loss of consciousness [Recovered/Resolved]
  - Ventricular fibrillation [Recovered/Resolved]
  - Torsade de pointes [Recovered/Resolved]

NARRATIVE: CASE EVENT DATE: 20180804
